FAERS Safety Report 5210461-6 (Version None)
Quarter: 2007Q1

REPORT INFORMATION
  Report Type: 
  Country: None (occurrence: None)
  Receive Date: 20070117
  Receipt Date: 20070108
  Transmission Date: 20070707
  Serious: Yes (Hospitalization)
  Sender: FDA-Public Use
  Company Number: PHHO2007AR01036

PATIENT
  Age: 58 Year
  Sex: Male

DRUGS (1)
  1. SANDIMMUNE [Suspect]
     Indication: TRANSPLANT
     Route: 048
     Dates: start: 20050224, end: 20061218

REACTIONS (1)
  - RED BLOOD CELL COUNT DECREASED [None]
